FAERS Safety Report 19218352 (Version 1)
Quarter: 2021Q2

REPORT INFORMATION
  Report Type: Spontaneous
  Country: FR (occurrence: FR)
  Receive Date: 20210505
  Receipt Date: 20210505
  Transmission Date: 20210717
  Serious: Yes (Hospitalization)
  Sender: FDA-Public Use
  Company Number: FR-ACCORD-223987

PATIENT
  Age: 66 Year
  Sex: Female
  Weight: 52 kg

DRUGS (2)
  1. METHOTREXATE. [Suspect]
     Active Substance: METHOTREXATE
     Indication: POLYMYOSITIS
     Route: 048
     Dates: start: 201911, end: 202009
  2. CORTANCYL [Suspect]
     Active Substance: PREDNISONE
     Indication: POLYMYOSITIS
     Route: 048
     Dates: start: 201911

REACTIONS (2)
  - Mixed anxiety and depressive disorder [Recovering/Resolving]
  - Off label use [Unknown]

NARRATIVE: CASE EVENT DATE: 202003
